FAERS Safety Report 9496823 (Version 1)
Quarter: 2013Q3

REPORT INFORMATION
  Report Type: Spontaneous
  Country: US (occurrence: None)
  Receive Date: 20130903
  Receipt Date: 20130903
  Transmission Date: 20140515
  Serious: Yes (Other)
  Sender: FDA-Public Use
  Company Number: None

PATIENT
  Age: 33 Year
  Sex: Female
  Weight: 122.47 kg

DRUGS (4)
  1. COPAXONE 1 INJECTION TEVA [Suspect]
     Indication: RELAPSING-REMITTING MULTIPLE SCLEROSIS
     Dosage: 1 INJECTION ONCE DAILY GIVEN INTO/UNDER THE SKIN
     Dates: start: 20130411, end: 20130820
  2. LEXAPRO [Concomitant]
  3. METFORMIN XR [Concomitant]
  4. MULTIVITAMIN [Concomitant]

REACTIONS (1)
  - Blood glucose increased [None]
